FAERS Safety Report 12495030 (Version 1)
Quarter: 2016Q2

REPORT INFORMATION
  Report Type: Spontaneous
  Country: US (occurrence: None)
  Receive Date: 20160623
  Receipt Date: 20160623
  Transmission Date: 20160815
  Serious: No
  Sender: FDA-Public Use
  Company Number: None

PATIENT
  Age: 43 Year
  Sex: Female
  Weight: 79.83 kg

DRUGS (3)
  1. VITAMIN D3 [Concomitant]
     Active Substance: CHOLECALCIFEROL
  2. MULTIVITAMIN [Concomitant]
     Active Substance: VITAMINS
  3. AMPHET/DEXTRO ER 20 MG CAP ACTAVIS EL [Suspect]
     Active Substance: AMPHETAMINE ASPARTATE\AMPHETAMINE SULFATE\DEXTROAMPHETAMINE SACCHARATE\DEXTROAMPHETAMINE SULFATE
     Indication: ATTENTION DEFICIT/HYPERACTIVITY DISORDER
     Dates: start: 20160511, end: 20160516

REACTIONS (6)
  - Product substitution issue [None]
  - Oesophagitis [None]
  - Disturbance in attention [None]
  - Drug ineffective [None]
  - Throat irritation [None]
  - Dyspepsia [None]

NARRATIVE: CASE EVENT DATE: 20160514
